FAERS Safety Report 5861708-4 (Version None)
Quarter: 2008Q3

REPORT INFORMATION
  Report Type: 
  Country: None (occurrence: None)
  Receive Date: 20080827
  Receipt Date: 20080625
  Transmission Date: 20090109
  Serious: No
  Sender: FDA-Public Use
  Company Number: US-ABBOTT-08P-163-0459308-00

PATIENT
  Sex: Male
  Weight: 95.34 kg

DRUGS (5)
  1. NIASPAN [Suspect]
     Indication: BLOOD CHOLESTEROL INCREASED
     Route: 048
  2. PROSTATE DRUG [Concomitant]
     Indication: BENIGN PROSTATIC HYPERPLASIA
     Route: 048
  3. FLUTICASONE PROPIONATE [Concomitant]
     Indication: HYPERSENSITIVITY
     Route: 045
  4. ACETYLSALICYLIC ACID SRT [Concomitant]
     Indication: PROPHYLAXIS
     Route: 048
  5. ACETYLSALICYLIC ACID SRT [Concomitant]
     Indication: FLUSHING

REACTIONS (3)
  - ANXIETY [None]
  - DIZZINESS [None]
  - FLUSHING [None]
